FAERS Safety Report 9341265 (Version 1)
Quarter: 2013Q2

REPORT INFORMATION
  Report Type: Spontaneous
  Country: CN (occurrence: CN)
  Receive Date: 20130611
  Receipt Date: 20130611
  Transmission Date: 20140414
  Serious: Yes (Other)
  Sender: FDA-Public Use
  Company Number: CN-ROCHE-1219976

PATIENT
  Age: 35 Year
  Sex: Female

DRUGS (1)
  1. OSELTAMIVIR [Suspect]
     Indication: INFLUENZA
     Route: 065
     Dates: start: 20130321

REACTIONS (2)
  - Drug ineffective [Unknown]
  - Pathogen resistance [Unknown]
